FAERS Safety Report 7395361-8 (Version None)
Quarter: 2011Q2

REPORT INFORMATION
  Report Type: 
  Country: None (occurrence: None)
  Receive Date: 20110405
  Receipt Date: 20110315
  Transmission Date: 20111010
  Serious: No
  Sender: FDA-Public Use
  Company Number: US-B.I. PHARMACEUTICALS,INC./RIDGEFIELD-2011-BP-01728BP

PATIENT
  Sex: Male

DRUGS (1)
  1. MIRAPEX [Suspect]
     Indication: PARKINSON'S DISEASE
     Dosage: 0.375 MG
     Dates: start: 20060718, end: 20100701

REACTIONS (3)
  - DEPRESSION [None]
  - PATHOLOGICAL GAMBLING [None]
  - EMOTIONAL DISTRESS [None]
